FAERS Safety Report 10182309 (Version 2)
Quarter: 2014Q2

REPORT INFORMATION
  Report Type: Report from Study
  Country: TW (occurrence: CH)
  Receive Date: 20140520
  Receipt Date: 20140520
  Transmission Date: 20141212
  Serious: Yes (Hospitalization)
  Sender: FDA-Public Use
  Company Number: CH-ROCHE-618488

PATIENT
  Age: 40 Year
  Sex: Female

DRUGS (8)
  1. MYCOPHENOLATE MOFETIL [Suspect]
     Indication: PROPHYLAXIS AGAINST TRANSPLANT REJECTION
     Dosage: DOSE (100 TABLETS), MMF OVERDOSE WAS TAKEN OF 25000 MG (100 TABLETS OF 25 G) WHICH TURNS OUT TO BE 4
     Route: 048
  2. MYCOPHENOLATE MOFETIL [Suspect]
     Route: 065
  3. MYCOPHENOLATE MOFETIL [Suspect]
     Dosage: LOW DOSE
     Route: 065
  4. FK 506 [Concomitant]
     Route: 065
  5. PREDNISOLONE [Concomitant]
     Route: 065
  6. SEROQUEL [Concomitant]
     Indication: BIPOLAR DISORDER
     Route: 065
  7. DEPAKINE [Concomitant]
     Indication: BIPOLAR DISORDER
     Route: 065
  8. ERISPAN [Concomitant]
     Indication: BIPOLAR DISORDER
     Route: 065

REACTIONS (5)
  - Intentional overdose [Unknown]
  - Leukopenia [Recovering/Resolving]
  - Decreased appetite [Recovering/Resolving]
  - Headache [Recovering/Resolving]
  - Lethargy [Recovering/Resolving]
